FAERS Safety Report 5497446-X (Version None)
Quarter: 2007Q4

REPORT INFORMATION
  Report Type: 
  Country: None (occurrence: None)
  Receive Date: 20071025
  Receipt Date: 20071011
  Transmission Date: 20080405
  Serious: Yes (Other)
  Sender: FDA-Public Use
  Company Number: NL-GENENTECH-250104

PATIENT
  Sex: Female
  Weight: 147.7 kg

DRUGS (7)
  1. HERCEPTIN [Suspect]
     Indication: BREAST CANCER
     Dosage: 8 MG/KG, UNK
     Dates: start: 20070705
  2. HERCEPTIN [Suspect]
     Dosage: 130 MG, 1/WEEK
     Dates: start: 20070726, end: 20070809
  3. HERCEPTIN [Suspect]
     Dosage: 400 MG, Q3W
     Dates: start: 20070906
  4. BISOPROLOL FUMARATE [Concomitant]
     Indication: DRUG USE FOR UNKNOWN INDICATION
  5. OMEPRAZOLE [Concomitant]
     Indication: DRUG USE FOR UNKNOWN INDICATION
  6. IBUPROFEN [Concomitant]
     Indication: DRUG USE FOR UNKNOWN INDICATION
  7. TAMOXIFEN CITRATE [Concomitant]
     Indication: DRUG USE FOR UNKNOWN INDICATION
     Dates: start: 20070619, end: 20070712

REACTIONS (5)
  - FATIGUE [None]
  - INFLUENZA [None]
  - PRURITUS [None]
  - SENSATION OF HEAVINESS [None]
  - SLEEP DISORDER [None]
